FAERS Safety Report 10648240 (Version 1)
Quarter: 2014Q4

REPORT INFORMATION
  Report Type: Spontaneous
  Country: US (occurrence: None)
  Receive Date: 20141211
  Receipt Date: 20141211
  Transmission Date: 20150529
  Serious: Yes (Hospitalization)
  Sender: FDA-Public Use
  Company Number: None

PATIENT
  Age: 80 Year
  Weight: 51.7 kg

DRUGS (2)
  1. OMNIPAQUE [Suspect]
     Active Substance: IOHEXOL
     Indication: COMPUTERISED TOMOGRAM THORAX
     Route: 042
  2. OMNIPAQUE [Suspect]
     Active Substance: IOHEXOL
     Indication: SCAN WITH CONTRAST
     Route: 042

REACTIONS (6)
  - Documented hypersensitivity to administered product [None]
  - Anaphylactic reaction [None]
  - Contrast media allergy [None]
  - Dyspnoea [None]
  - Hypoxia [None]
  - Wheezing [None]

NARRATIVE: CASE EVENT DATE: 20141204
